FAERS Safety Report 15505886 (Version 2)
Quarter: 2020Q4

REPORT INFORMATION
  Report Type: Spontaneous
  Country: US (occurrence: US)
  Receive Date: 20181016
  Receipt Date: 20201109
  Transmission Date: 20210113
  Serious: No
  Sender: FDA-Public Use
  Company Number: US-PFIZER INC-2018413576

PATIENT
  Age: 62 Year
  Sex: Female
  Weight: 97.52 kg

DRUGS (3)
  1. TEGRETOL [Concomitant]
     Active Substance: CARBAMAZEPINE
     Indication: SEIZURE
     Dosage: 400 MG, 3X/DAY
     Dates: start: 1992
  2. DILANTIN [Suspect]
     Active Substance: PHENYTOIN
     Dosage: 100 MG (ONE CAPSULE TWICE A DAY AND TWO CAPSULES ONCE A DAY)
     Dates: start: 1981
  3. DILANTIN [Suspect]
     Active Substance: PHENYTOIN
     Indication: SEIZURE
     Dosage: 400 MG, DAILY (100 MG CAPSULE BY MOUTH TAKES FOUR A DAY)
     Route: 048

REACTIONS (2)
  - Speech disorder [Unknown]
  - Dysarthria [Unknown]
